FAERS Safety Report 10905185 (Version 1)
Quarter: 2015Q1

REPORT INFORMATION
  Report Type: Spontaneous
  Country: US (occurrence: None)
  Receive Date: 20150309
  Receipt Date: 20150309
  Transmission Date: 20150721
  Serious: Yes (Hospitalization)
  Sender: FDA-Public Use
  Company Number: None

PATIENT
  Age: 74 Year
  Sex: Male
  Weight: 78.47 kg

DRUGS (2)
  1. CETUXIMAB [Suspect]
     Active Substance: CETUXIMAB
     Indication: HEAD AND NECK CANCER
     Dates: start: 20150105
  2. ERIBULIN [Suspect]
     Active Substance: ERIBULIN
     Indication: NEOPLASM MALIGNANT
     Route: 042
     Dates: start: 20150105

REACTIONS (3)
  - Febrile neutropenia [None]
  - Sepsis [None]
  - Chronic obstructive pulmonary disease [None]

NARRATIVE: CASE EVENT DATE: 20150302
